FAERS Safety Report 9552992 (Version 1)
Quarter: 2013Q3

REPORT INFORMATION
  Report Type: Spontaneous
  Country: FR (occurrence: FR)
  Receive Date: 20130925
  Receipt Date: 20130925
  Transmission Date: 20140515
  Serious: Yes (Other)
  Sender: FDA-Public Use
  Company Number: FR-NOVOPROD-388015

PATIENT
  Age: 59 Year
  Sex: Male

DRUGS (6)
  1. VICTOZA [Suspect]
     Indication: PRODUCT USED FOR UNKNOWN INDICATION
     Dosage: 0.6 MG, QD
     Route: 058
     Dates: start: 201303, end: 20130812
  2. LIPANTHYL [Concomitant]
  3. TAHOR [Concomitant]
  4. ATACAND [Concomitant]
  5. PLAVIX [Concomitant]
  6. METFORMINE [Concomitant]

REACTIONS (3)
  - Abdominal pain [Recovered/Resolved]
  - Blood creatinine increased [Recovered/Resolved]
  - Diarrhoea [Recovered/Resolved]
